FAERS Safety Report 13707926 (Version 4)
Quarter: 2017Q4

REPORT INFORMATION
  Report Type: Spontaneous
  Country: IL (occurrence: IL)
  Receive Date: 20170630
  Receipt Date: 20171218
  Transmission Date: 20180320
  Serious: Yes (Other)
  Sender: FDA-Public Use
  Company Number: IL-TEVA-781163ACC

PATIENT
  Age: 75 Year
  Sex: Female

DRUGS (1)
  1. ZOLEDRONIC ACID [Suspect]
     Active Substance: ZOLEDRONIC ACID
     Indication: OSTEOPOROSIS
     Route: 041

REACTIONS (12)
  - Arthritis [Unknown]
  - Pain [Unknown]
  - Rheumatoid arthritis [Unknown]
  - Pyrexia [Unknown]
  - Peripheral swelling [Unknown]
  - Autoinflammatory disease [Unknown]
  - Vomiting [Unknown]
  - Movement disorder [Unknown]
  - Antinuclear antibody positive [Unknown]
  - Syncope [Unknown]
  - Rheumatoid factor positive [Unknown]
  - Tenderness [Unknown]
